FAERS Safety Report 4578680-X (Version None)
Quarter: 2005Q1

REPORT INFORMATION
  Report Type: 
  Country: None (occurrence: None)
  Receive Date: 20050211
  Receipt Date: 20041124
  Transmission Date: 20050727
  Serious: Yes (Other)
  Sender: FDA-Public Use
  Company Number: BR-ROCHE-387564

PATIENT
  Age: 24 Year
  Sex: Female
  Weight: 50 kg

DRUGS (3)
  1. MYCOPHENOLATE MOFETIL [Suspect]
     Route: 048
     Dates: start: 20001121, end: 20011115
  2. MYCOPHENOLATE MOFETIL [Suspect]
     Route: 048
     Dates: start: 20011115, end: 20040916
  3. PREDNISONE [Suspect]
     Route: 048
     Dates: start: 20001121, end: 20040916

REACTIONS (2)
  - ABORTION MISSED [None]
  - PREGNANCY [None]
